FAERS Safety Report 4504559-5 (Version None)
Quarter: 2004Q4

REPORT INFORMATION
  Report Type: 
  Country: None (occurrence: None)
  Receive Date: 20041116
  Receipt Date: 20040818
  Transmission Date: 20050328
  Serious: No
  Sender: FDA-Public Use
  Company Number: 8637

PATIENT
  Age: 64 Year
  Sex: Male

DRUGS (1)
  1. AMIODARONE [Suspect]
     Indication: ATRIAL FIBRILLATION
     Dosage: 400 MG

REACTIONS (4)
  - CARDIAC FAILURE [None]
  - HYPERGLYCAEMIA [None]
  - HYPERTHYROIDISM [None]
  - THERAPY NON-RESPONDER [None]
